FAERS Safety Report 25071110 (Version 2)
Quarter: 2025Q1

REPORT INFORMATION
  Report Type: Spontaneous
  Country: US (occurrence: US)
  Receive Date: 20250312
  Receipt Date: 20250321
  Transmission Date: 20250408
  Serious: No
  Sender: BRISTOL-MYERS SQUIBB COMPANY
  Company Number: US-EXELIXIS-EXL-2025-004980

PATIENT
  Age: 62 Year
  Sex: Male

DRUGS (3)
  1. OPDIVO [Suspect]
     Active Substance: NIVOLUMAB
     Indication: Renal cancer
     Dosage: UNK UNK, Q2WEEKS
  2. CABOMETYX [Suspect]
     Active Substance: CABOZANTINIB S-MALATE
     Indication: Renal cancer
     Dosage: 40 MG, QD
     Route: 048
     Dates: start: 2024
  3. CABOMETYX [Suspect]
     Active Substance: CABOZANTINIB S-MALATE
     Dosage: 20 MG, QD
     Route: 048

REACTIONS (6)
  - Hair colour changes [Not Recovered/Not Resolved]
  - Diarrhoea [Unknown]
  - Pruritus [Not Recovered/Not Resolved]
  - Blood pressure abnormal [Unknown]
  - Tooth abscess [Unknown]
  - Psoriasis [Unknown]

NARRATIVE: CASE EVENT DATE: 20241201
